FAERS Safety Report 10961764 (Version 1)
Quarter: 2015Q1

REPORT INFORMATION
  Report Type: Report from Study
  Country: JP (occurrence: JP)
  Receive Date: 20150327
  Receipt Date: 20150327
  Transmission Date: 20150721
  Serious: Yes (Hospitalization)
  Sender: FDA-Public Use
  Company Number: JP-ASTRAZENECA-2015SE18256

PATIENT
  Age: 67 Year
  Sex: Male

DRUGS (13)
  1. GASTER [Concomitant]
     Active Substance: FAMOTIDINE
     Route: 048
     Dates: end: 20140924
  2. ATORVASTATIN [Concomitant]
     Active Substance: ATORVASTATIN
     Route: 048
     Dates: end: 20140924
  3. AMLODIPINE [Concomitant]
     Active Substance: AMLODIPINE BESYLATE
     Route: 048
     Dates: start: 20140816, end: 20140921
  4. ETIZOLAM [Concomitant]
     Active Substance: ETIZOLAM
     Dosage: AS REQUIRED
     Route: 048
     Dates: start: 20140825, end: 20140925
  5. MAINTATE [Concomitant]
     Active Substance: BISOPROLOL FUMARATE
     Route: 048
     Dates: start: 20140825, end: 20140921
  6. FORXIGA [Suspect]
     Active Substance: DAPAGLIFLOZIN
     Indication: TYPE 2 DIABETES MELLITUS
     Dosage: MORNINGS
     Route: 048
     Dates: start: 20140812, end: 20140929
  7. HALFDIGOXIN [Concomitant]
     Active Substance: DIGOXIN
     Route: 048
     Dates: end: 20140924
  8. PRAZAXA [Concomitant]
     Active Substance: DABIGATRAN ETEXILATE MESYLATE
     Route: 048
     Dates: end: 20140924
  9. CO-DIO [Concomitant]
     Active Substance: HYDROCHLOROTHIAZIDE\VALSARTAN
     Dosage: DOSE UNKNOWN (EXTRA)
     Route: 048
     Dates: end: 20140920
  10. AZOSEMIDE [Concomitant]
     Active Substance: AZOSEMIDE
     Route: 048
     Dates: end: 20140924
  11. MEXILETINE HYDROCHLORIDE. [Concomitant]
     Active Substance: MEXILETINE HYDROCHLORIDE
     Route: 048
  12. MYSLEE [Concomitant]
     Active Substance: ZOLPIDEM TARTRATE
     Route: 048
     Dates: end: 20140924
  13. FEBURIC [Concomitant]
     Active Substance: FEBUXOSTAT
     Route: 048
     Dates: end: 20140924

REACTIONS (1)
  - Dyspnoea [Recovered/Resolved]

NARRATIVE: CASE EVENT DATE: 20140929
